FAERS Safety Report 4566459-4 (Version None)
Quarter: 2005Q1

REPORT INFORMATION
  Report Type: 
  Country: None (occurrence: None)
  Receive Date: 20050201
  Receipt Date: 20050111
  Transmission Date: 20050727
  Serious: Yes (Disabling)
  Sender: FDA-Public Use
  Company Number: FR-BRISTOL-MYERS SQUIBB COMPANY-12820502

PATIENT
  Age: 54 Year
  Sex: Female

DRUGS (5)
  1. CETUXIMAB [Suspect]
     Indication: COLORECTAL CANCER METASTATIC
     Dosage: THERAPY INITIATED 27-OCT-2004
     Route: 042
     Dates: start: 20041122
  2. IRINOTECAN HCL [Suspect]
     Indication: COLORECTAL CANCER METASTATIC
     Dosage: THERAPY INITIATED 27-OCT-2004
     Route: 042
     Dates: start: 20041122
  3. DURAGESIC [Concomitant]
     Dates: start: 20040325
  4. IMODIUM [Concomitant]
     Dates: start: 20040610
  5. DIFFU-K [Concomitant]
     Dates: start: 20040610

REACTIONS (1)
  - NARCOLEPSY [None]
